FAERS Safety Report 8840003 (Version 1)
Quarter: 2012Q4

REPORT INFORMATION
  Report Type: Spontaneous
  Country: US (occurrence: None)
  Receive Date: 20121012
  Receipt Date: 20121012
  Transmission Date: 20130627
  Serious: Yes (Hospitalization)
  Sender: FDA-Public Use
  Company Number: None

PATIENT
  Age: 89 Year
  Sex: Female
  Weight: 69.85 kg

DRUGS (1)
  1. ACTOS [Suspect]
     Route: 048
     Dates: start: 20080329, end: 20110724

REACTIONS (1)
  - Cystitis haemorrhagic [None]
